FAERS Safety Report 16462944 (Version 2)
Quarter: 2019Q3

REPORT INFORMATION
  Report Type: Spontaneous
  Country: DK (occurrence: DK)
  Receive Date: 20190621
  Receipt Date: 20190711
  Transmission Date: 20191004
  Serious: Yes (Death, Other)
  Sender: FDA-Public Use
  Company Number: DK-TEVA-2013-08988

PATIENT
  Age: 91 Year
  Sex: Female

DRUGS (1)
  1. METHOTREXATE (METHOTREXATE SODIUM) [Suspect]
     Active Substance: METHOTREXATE SODIUM
     Indication: RHEUMATOID ARTHRITIS
     Dosage: 10 MILLIGRAM DAILY; 10 MG, DAILY
     Route: 065

REACTIONS (5)
  - Thrombocytopenia [Unknown]
  - Inappropriate schedule of product administration [Unknown]
  - Stomatitis [Unknown]
  - Neutropenia [Unknown]
  - Septic shock [Fatal]
